FAERS Safety Report 8537440-5 (Version None)
Quarter: 2012Q3

REPORT INFORMATION
  Report Type: 
  Country: None (occurrence: None)
  Receive Date: 20120725
  Receipt Date: 20120719
  Transmission Date: 20120928
  Serious: Yes (Hospitalization)
  Sender: FDA-Public Use
  Company Number: AU-ABBOTT-12P-008-0955594-00

PATIENT
  Age: 58 Year
  Sex: Female

DRUGS (1)
  1. LIPIDIL [Suspect]
     Indication: PRODUCT USED FOR UNKNOWN INDICATION
     Dosage: NOCTE
     Route: 048
     Dates: start: 20120101, end: 20120101

REACTIONS (2)
  - RHABDOMYOLYSIS [None]
  - PSORIASIS [None]
